FAERS Safety Report 7941378-1 (Version None)
Quarter: 2011Q4

REPORT INFORMATION
  Report Type: 
  Country: None (occurrence: None)
  Receive Date: 20111122
  Receipt Date: 20111108
  Transmission Date: 20120403
  Serious: Yes (Death)
  Sender: FDA-Public Use
  Company Number: 2011-488

PATIENT
  Age: 51 Year
  Sex: Male

DRUGS (5)
  1. RISPERDAL [Concomitant]
  2. FAZACLO ODT [Suspect]
     Dosage: 350 MG, QD, ORAL
     Route: 048
     Dates: start: 20101229, end: 20111101
  3. MULTIVITAMIN (ASCORBIC ACID, CALCIUM PANTOTHENATE, ERGOCALCIFEROL, NIC [Concomitant]
  4. KLONOPIN [Concomitant]
  5. INDERAL [Concomitant]

REACTIONS (1)
  - DEATH [None]
